FAERS Safety Report 5132343-0 (Version None)
Quarter: 2006Q4

REPORT INFORMATION
  Report Type: 
  Country: None (occurrence: None)
  Receive Date: 20061023
  Receipt Date: 20060928
  Transmission Date: 20070319
  Serious: Yes (Hospitalization)
  Sender: FDA-Public Use
  Company Number: DEWYE072429SEP06

PATIENT
  Sex: Male
  Weight: 65 kg

DRUGS (10)
  1. ENBREL [Suspect]
     Indication: RHEUMATOID ARTHRITIS
     Route: 058
     Dates: start: 20040801, end: 20060830
  2. AZULFIDINE [Concomitant]
     Dosage: UNKNOWN
  3. RAMIPRIL [Concomitant]
     Dosage: UNKNOWN
  4. BERLINSULIN L [Concomitant]
     Dosage: ON DEMAND
  5. PANTOZOL [Concomitant]
  6. ZORAC [Concomitant]
  7. BISOMERCK [Concomitant]
  8. VITAMIN D3 [Concomitant]
     Dosage: UNKNOWN
  9. ARAVA [Concomitant]
     Dosage: 20 MG PER DAY
  10. SAROTEN [Concomitant]

REACTIONS (4)
  - ACTINIC KERATOSIS [None]
  - BASAL CELL CARCINOMA [None]
  - BOWEN'S DISEASE [None]
  - PRECANCEROUS SKIN LESION [None]
